FAERS Safety Report 10781676 (Version 2)
Quarter: 2015Q1

REPORT INFORMATION
  Report Type: Spontaneous
  Country: US (occurrence: US)
  Receive Date: 20150210
  Receipt Date: 20150217
  Transmission Date: 20150721
  Serious: No
  Sender: FDA-Public Use
  Company Number: US-GILEAD-2015-0136459

PATIENT
  Age: 40 Year
  Sex: Female

DRUGS (4)
  1. OPSUMIT [Concomitant]
     Active Substance: MACITENTAN
  2. LETAIRIS [Suspect]
     Active Substance: AMBRISENTAN
     Indication: PRODUCT USED FOR UNKNOWN INDICATION
     Dosage: 10 MG, QD
     Route: 065
     Dates: start: 20131018
  3. TYVASO [Concomitant]
     Active Substance: TREPROSTINIL
  4. ADCIRCA [Concomitant]
     Active Substance: TADALAFIL

REACTIONS (2)
  - Headache [Unknown]
  - Pain [Unknown]
